FAERS Safety Report 23606586 (Version 1)
Quarter: 2024Q1

REPORT INFORMATION
  Report Type: Spontaneous
  Country: GB (occurrence: GB)
  Receive Date: 20240307
  Receipt Date: 20240307
  Transmission Date: 20240409
  Serious: Yes (Other)
  Sender: FDA-Public Use
  Company Number: None

PATIENT
  Age: 11 Year
  Sex: Male

DRUGS (1)
  1. METHYLPHENIDATE HYDROCHLORIDE [Suspect]
     Active Substance: METHYLPHENIDATE HYDROCHLORIDE
     Indication: Attention deficit hyperactivity disorder
     Dosage: 36 MILLIGRAM, QD (ONCE DAILY)
     Route: 065
     Dates: start: 20240225, end: 20240301

REACTIONS (3)
  - Mouth ulceration [Recovered/Resolved]
  - Lip swelling [Recovered/Resolved]
  - Lip erythema [Recovered/Resolved]

NARRATIVE: CASE EVENT DATE: 20240226
